FAERS Safety Report 21320579 (Version 1)
Quarter: 2022Q3

REPORT INFORMATION
  Report Type: Spontaneous
  Country: CH (occurrence: CH)
  Receive Date: 20220912
  Receipt Date: 20220912
  Transmission Date: 20221027
  Serious: Yes (Hospitalization)
  Sender: FDA-Public Use
  Company Number: CH-Accord-273493

PATIENT
  Age: 90 Year
  Sex: Female

DRUGS (6)
  1. AMLODIPINE BESYLATE\OLMESARTAN MEDOXOMIL [Suspect]
     Active Substance: AMLODIPINE BESYLATE\OLMESARTAN MEDOXOMIL
     Indication: Hypertension
     Dosage: 20 MG OLMESARTAN AND 5 MG AMLODIPINE DAILY
  2. HYDROCHLOROTHIAZIDE [Concomitant]
     Active Substance: HYDROCHLOROTHIAZIDE
     Indication: Hypertension
     Dosage: 25 MG HYDROCHLOROTHIAZIDE DAILY
  3. APIXABAN [Concomitant]
     Active Substance: APIXABAN
     Indication: Aortic stenosis
     Dosage: 5 MG APIXABAN TWICE PER DAY
  4. OMEPRAZOLE [Concomitant]
     Active Substance: OMEPRAZOLE
     Indication: Product used for unknown indication
     Dosage: 20 MG OMEPRAZOLE DAILY
  5. AMLODIPINE BESYLATE\OLMESARTAN MEDOXOMIL [Suspect]
     Active Substance: AMLODIPINE BESYLATE\OLMESARTAN MEDOXOMIL
     Indication: Hypertension
     Dosage: 20 MG OLMESARTAN AND 5 MG AMLODIPINE DAILY
  6. HYDROCHLOROTHIAZIDE [Concomitant]
     Active Substance: HYDROCHLOROTHIAZIDE
     Indication: Hypertension
     Dosage: 25 MG HYDROCHLOROTHIAZIDE DAILY

REACTIONS (1)
  - Gastrointestinal disorder [Recovered/Resolved]
